FAERS Safety Report 5484530-X (Version None)
Quarter: 2007Q4

REPORT INFORMATION
  Report Type: 
  Country: None (occurrence: None)
  Receive Date: 20071012
  Receipt Date: 20070930
  Transmission Date: 20080405
  Serious: Yes (Hospitalization, Disabling, Other)
  Sender: FDA-Public Use
  Company Number: US-PFIZER INC-2007055274

PATIENT
  Sex: Female

DRUGS (9)
  1. PREDNISONE [Suspect]
  2. CHANTIX [Suspect]
  3. ANTIHYPERTENSIVES [Concomitant]
  4. SPIRIVA [Concomitant]
  5. ADVAIR DISKUS 100/50 [Concomitant]
  6. METOPROLOL [Concomitant]
  7. POTASSIUM CHLORIDE [Concomitant]
  8. OXYGEN [Concomitant]
  9. TRIAMTERENE AND HYDROCHLOROTHIAZIDE [Concomitant]
     Dosage: TEXT:HALF TABLET

REACTIONS (5)
  - BLOOD GLUCOSE INCREASED [None]
  - CHRONIC OBSTRUCTIVE PULMONARY DISEASE [None]
  - COMA [None]
  - DISABILITY [None]
  - HEART RATE INCREASED [None]
